FAERS Safety Report 9929023 (Version 1)
Quarter: 2014Q1

REPORT INFORMATION
  Report Type: Spontaneous
  Country: US (occurrence: US)
  Receive Date: 20140227
  Receipt Date: 20140227
  Transmission Date: 20141002
  Serious: Yes (Hospitalization)
  Sender: FDA-Public Use
  Company Number: US-B.I. PHARMACEUTICALS,INC./RIDGEFIELD-2014-BI-07624BP

PATIENT
  Age: 70 Year
  Sex: Male

DRUGS (5)
  1. PRADAXA [Suspect]
     Indication: CEREBROVASCULAR ACCIDENT PROPHYLAXIS
     Dosage: 300 MG
     Route: 048
     Dates: start: 201310, end: 20140216
  2. PRADAXA [Suspect]
     Indication: ATRIAL FIBRILLATION
  3. DIGOXIN [Concomitant]
     Route: 065
  4. BETA BLOCKER [Concomitant]
     Route: 065
  5. ACE INHIBITOR [Concomitant]
     Route: 065

REACTIONS (2)
  - Ischaemic stroke [Not Recovered/Not Resolved]
  - Pulmonary mass [Not Recovered/Not Resolved]
